FAERS Safety Report 24334179 (Version 1)
Quarter: 2024Q3

REPORT INFORMATION
  Report Type: Spontaneous
  Country: TR (occurrence: TR)
  Receive Date: 20240918
  Receipt Date: 20240918
  Transmission Date: 20241017
  Serious: Yes (Hospitalization, Other)
  Sender: PFIZER
  Company Number: TR-PFIZER INC-PV202400121878

PATIENT
  Age: 64 Year
  Sex: Male

DRUGS (3)
  1. LORLATINIB [Suspect]
     Active Substance: LORLATINIB
     Indication: Lung neoplasm malignant
     Dosage: 1 DF, 1X/DAY
     Route: 048
     Dates: start: 20240807
  2. TEGRETOL [Suspect]
     Active Substance: CARBAMAZEPINE
     Indication: Cancer pain
     Dosage: 2 DF, 1X/DAY
     Route: 048
     Dates: start: 20240829
  3. TRAMADOL HYDROCHLORIDE [Suspect]
     Active Substance: TRAMADOL HYDROCHLORIDE
     Indication: Cancer pain
     Dosage: 1 DF, 1X/DAY
     Route: 048
     Dates: start: 20240829

REACTIONS (3)
  - Eating disorder [Not Recovered/Not Resolved]
  - Unresponsive to stimuli [Not Recovered/Not Resolved]
  - Memory impairment [Not Recovered/Not Resolved]

NARRATIVE: CASE EVENT DATE: 20240811
